FAERS Safety Report 9771415 (Version 6)
Quarter: 2014Q1

REPORT INFORMATION
  Report Type: Report from Study
  Country: CN (occurrence: CN)
  Receive Date: 20131219
  Receipt Date: 20140312
  Transmission Date: 20141002
  Serious: Yes (Hospitalization)
  Sender: FDA-Public Use
  Company Number: CN-AMGEN-CHNCT2013086891

PATIENT
  Age: 55 Year
  Sex: Male
  Weight: 63 kg

DRUGS (5)
  1. PANITUMUMAB [Suspect]
     Indication: COLORECTAL CANCER METASTATIC
     Dosage: 378 MG, UNK
     Route: 065
     Dates: start: 20130712, end: 20131129
  2. MUPIROCIN [Concomitant]
     Dosage: 0.2 G, UNK
     Route: 061
     Dates: start: 20130724
  3. ELOSON [Concomitant]
     Dosage: 0.2 G, UNK
     Route: 061
     Dates: start: 20130724
  4. GLIPIZIDE [Concomitant]
     Dosage: 5 MG, UNK
     Route: 048
     Dates: start: 201110, end: 20131003
  5. GLICLAZIDE [Concomitant]
     Dosage: 30 MG, UNK
     Route: 048
     Dates: start: 20131004

REACTIONS (1)
  - Asthma [Recovered/Resolved]
